FAERS Safety Report 6028150-7 (Version None)
Quarter: 2008Q4

REPORT INFORMATION
  Report Type: 
  Country: None (occurrence: None)
  Receive Date: 20081231
  Receipt Date: 20081231
  Transmission Date: 20090506
  Serious: Yes (Hospitalization)
  Sender: FDA-Public Use
  Company Number: None

PATIENT
  Sex: Female
  Weight: 94.7 kg

DRUGS (3)
  1. CISPLATIN [Suspect]
     Dosage: 98 MG
  2. DOXORUBICIN HYDROCHLORIDE [Suspect]
     Dosage: 88 MG
  3. TAXOL [Suspect]
     Dosage: 118 MG

REACTIONS (1)
  - NEUTROPENIA [None]
